FAERS Safety Report 4509174-5 (Version None)
Quarter: 2004Q4

REPORT INFORMATION
  Report Type: 
  Country: None (occurrence: None)
  Receive Date: 20041025
  Receipt Date: 20040806
  Transmission Date: 20050328
  Serious: Yes (Hospitalization)
  Sender: FDA-Public Use
  Company Number: US-JNJFOC-20040802244

PATIENT
  Age: 72 Year
  Sex: Female

DRUGS (13)
  1. INFLIXIMAB (INFLIXIMAB, RECOMBINANT) LYOPHILIZED POWDER [Suspect]
     Indication: RHEUMATOID ARTHRITIS
     Dosage: 1 IN 4 WEEK, INTRAVENOUS
     Route: 042
     Dates: start: 20001018
  2. METHOTREXATE [Concomitant]
  3. FOLIC ACID [Concomitant]
  4. ALTACE [Concomitant]
  5. ASPIRIN [Concomitant]
  6. CELEBREX [Concomitant]
  7. COREG [Concomitant]
  8. FOSAMAX [Concomitant]
  9. HYDOCODONE (HYDROCODONE) [Concomitant]
  10. MULTIVITAMIN (MULITAMINS) [Concomitant]
  11. PREDNISONE [Concomitant]
  12. VITAMIN C (ASCORBIC ACID) [Concomitant]
  13. OXYCONTIN [Concomitant]

REACTIONS (1)
  - MYOCARDIAL INFARCTION [None]
